FAERS Safety Report 14180066 (Version 1)
Quarter: 2017Q4

REPORT INFORMATION
  Report Type: Spontaneous
  Country: US (occurrence: US)
  Receive Date: 20171110
  Receipt Date: 20171110
  Transmission Date: 20180321
  Serious: No
  Sender: FDA-Public Use
  Company Number: US-009507513-1710USA010598

PATIENT
  Sex: Female
  Weight: 81.63 kg

DRUGS (2)
  1. NEXPLANON [Suspect]
     Active Substance: ETONOGESTREL
     Indication: CONTRACEPTION
     Dosage: 1 DF, 3 YEARS IN THE LEFT ARM
     Route: 059
     Dates: start: 20160818
  2. RETIN-A [Concomitant]
     Active Substance: TRETINOIN
     Dosage: UNK

REACTIONS (4)
  - Oligomenorrhoea [Unknown]
  - Weight decreased [Unknown]
  - Menorrhagia [Unknown]
  - Menstruation delayed [Unknown]

NARRATIVE: CASE EVENT DATE: 2017
